FAERS Safety Report 25766868 (Version 1)
Quarter: 2025Q3

REPORT INFORMATION
  Report Type: Spontaneous
  Country: US (occurrence: US)
  Receive Date: 20250905
  Receipt Date: 20250905
  Transmission Date: 20251021
  Serious: No
  Sender: COSETTE PHARMACEUTICALS INC
  Company Number: US-COSETTE-CP2025US000846

PATIENT
  Sex: Male

DRUGS (1)
  1. HYDROCORTISONE VALERATE [Suspect]
     Active Substance: HYDROCORTISONE VALERATE
     Indication: Impetigo
     Route: 065

REACTIONS (3)
  - Impetigo [Unknown]
  - Condition aggravated [Unknown]
  - Product use in unapproved indication [Unknown]
